FAERS Safety Report 13329977 (Version 1)
Quarter: 2017Q1

REPORT INFORMATION
  Report Type: Spontaneous
  Country: FR (occurrence: FR)
  Receive Date: 20170313
  Receipt Date: 20170313
  Transmission Date: 20170428
  Serious: Yes (Other)
  Sender: FDA-Public Use
  Company Number: FR-ALLERGAN-1709464US

PATIENT
  Age: 55 Year
  Sex: Female

DRUGS (1)
  1. FOSFOMYCIN TROMETHAMINE - BP [Suspect]
     Active Substance: FOSFOMYCIN TROMETHAMINE
     Indication: URINARY TRACT INFECTION
     Dosage: 3 G, SINGLE
     Route: 048
     Dates: start: 201611, end: 201611

REACTIONS (12)
  - Biliary cyst [Unknown]
  - Tetany [Unknown]
  - Renal cyst [Unknown]
  - Gastrointestinal disorder [Unknown]
  - Eosinophilia [Recovered/Resolved]
  - Abdominal pain [Unknown]
  - Dry eye [Unknown]
  - Hepatomegaly [Unknown]
  - Asthenia [Unknown]
  - Paraesthesia [Unknown]
  - Nausea [Unknown]
  - Arthralgia [Unknown]

NARRATIVE: CASE EVENT DATE: 20161123
